FAERS Safety Report 7005901-6 (Version None)
Quarter: 2010Q3

REPORT INFORMATION
  Report Type: 
  Country: None (occurrence: None)
  Receive Date: 20100921
  Receipt Date: 20100816
  Transmission Date: 20110219
  Serious: Yes (Hospitalization, Other)
  Sender: FDA-Public Use
  Company Number: US-BAXTER-2010BH021623

PATIENT
  Age: 42 Year
  Sex: Male

DRUGS (2)
  1. HEPARIN SODIUM INJECTION [Suspect]
     Indication: CENTRAL VENOUS CATHETERISATION
     Route: 040
     Dates: start: 20080831
  2. HEPARIN SODIUM INJECTION [Suspect]
     Route: 065
     Dates: start: 20080901

REACTIONS (10)
  - ANAEMIA [None]
  - ANOXIA [None]
  - BLINDNESS [None]
  - BLOOD PRESSURE DECREASED [None]
  - CARDIOGENIC SHOCK [None]
  - CATHETER SITE HAEMATOMA [None]
  - COMPARTMENT SYNDROME [None]
  - HAEMORRHAGE [None]
  - HYPOTENSION [None]
  - PARALYSIS [None]
